FAERS Safety Report 9221686 (Version 1)
Quarter: 2013Q2

REPORT INFORMATION
  Report Type: Spontaneous
  Country: US (occurrence: US)
  Receive Date: 20130410
  Receipt Date: 20130410
  Transmission Date: 20140414
  Serious: No
  Sender: FDA-Public Use
  Company Number: US-JNJFOC-20130318184

PATIENT
  Age: 54 Year
  Sex: Male

DRUGS (1)
  1. DURAGESIC [Suspect]
     Indication: BONE PAIN
     Route: 062
     Dates: start: 201208

REACTIONS (4)
  - Drug dose omission [Recovered/Resolved]
  - Wrong technique in drug usage process [Unknown]
  - Product quality issue [Unknown]
  - Product adhesion issue [Unknown]
